FAERS Safety Report 17756140 (Version 1)
Quarter: 2020Q2

REPORT INFORMATION
  Report Type: Spontaneous
  Country: US (occurrence: US)
  Receive Date: 20200507
  Receipt Date: 20200507
  Transmission Date: 20200714
  Serious: Yes (Hospitalization)
  Sender: FDA-Public Use
  Company Number: None

PATIENT
  Age: 75 Year
  Sex: Male

DRUGS (2)
  1. ASPIRIN (ASPIRIN 81MG TAB,EC) [Suspect]
     Active Substance: ASPIRIN
     Indication: VASCULAR DEVICE USER
     Route: 048
     Dates: start: 20150806, end: 20200428
  2. CLOPIDOGREL (CLOPIDOGREL BISULFATE 75MG TAB) [Suspect]
     Active Substance: CLOPIDOGREL BISULFATE
     Indication: VASCULAR DEVICE USER
     Route: 048
     Dates: start: 20150626

REACTIONS (6)
  - Cerebral small vessel ischaemic disease [None]
  - Basal ganglia haemorrhage [None]
  - Arteriovenous malformation [None]
  - Thalamus haemorrhage [None]
  - Neoplasm [None]
  - Blood pressure increased [None]

NARRATIVE: CASE EVENT DATE: 20200428
